FAERS Safety Report 9818882 (Version 2)
Quarter: 2013Q4

REPORT INFORMATION
  Report Type: Spontaneous
  Country: US (occurrence: None)
  Receive Date: 20131223
  Receipt Date: 20131223
  Transmission Date: 20140711
  Serious: Yes (Other)
  Sender: FDA-Public Use
  Company Number: 219565

PATIENT
  Age: 62 Year
  Sex: Male

DRUGS (3)
  1. PICATO GEL [Suspect]
     Indication: ACTINIC KERATOSIS
     Dates: start: 20121104, end: 20121106
  2. LIPITOR (ATORVASTATIN CALCIUM) [Concomitant]
  3. BYSTOLIC (NEBIVOLOL HYDROCHLORIDE) [Concomitant]

REACTIONS (3)
  - Application site pain [None]
  - Application site swelling [None]
  - Drug administered at inappropriate site [None]
